FAERS Safety Report 15507199 (Version 1)
Quarter: 2018Q4

REPORT INFORMATION
  Report Type: Spontaneous
  Country: FR (occurrence: FR)
  Receive Date: 20181016
  Receipt Date: 20181016
  Transmission Date: 20190205
  Serious: Yes (Death, Other)
  Sender: FDA-Public Use
  Company Number: FR-PFM-2018-12394

PATIENT

DRUGS (3)
  1. OLANZAPINE. [Suspect]
     Active Substance: OLANZAPINE
     Indication: INTENTIONAL OVERDOSE
     Dosage: 14 DF IN TOTAL ON 13-DEC-2017
     Route: 048
     Dates: start: 20171213, end: 20171213
  2. CLOMIPRAMINE [Suspect]
     Active Substance: CLOMIPRAMINE
     Indication: INTENTIONAL OVERDOSE
     Dosage: NP
     Route: 048
     Dates: start: 20171213, end: 20171213
  3. PROPRANOLOL [Suspect]
     Active Substance: PROPRANOLOL HYDROCHLORIDE
     Indication: INTENTIONAL OVERDOSE
     Dosage: 75 DF IN TOTAL ON 13-DEC-2017
     Route: 048
     Dates: start: 20171213, end: 20171213

REACTIONS (6)
  - Depressed level of consciousness [Fatal]
  - Bradycardia [Fatal]
  - Intentional overdose [Unknown]
  - Off label use [Unknown]
  - Cardio-respiratory arrest [Fatal]
  - Product administered to patient of inappropriate age [Unknown]

NARRATIVE: CASE EVENT DATE: 20171213
